FAERS Safety Report 18823283 (Version 3)
Quarter: 2021Q1

REPORT INFORMATION
  Report Type: Spontaneous
  Country: US (occurrence: US)
  Receive Date: 20210202
  Receipt Date: 20210219
  Transmission Date: 20210419
  Serious: Yes (Other)
  Sender: FDA-Public Use
  Company Number: US-SA-2021SA030913

PATIENT
  Age: 4 Year
  Sex: Male

DRUGS (3)
  1. LANTUS [Suspect]
     Active Substance: INSULIN GLARGINE
     Indication: TYPE 1 DIABETES MELLITUS
     Dosage: 3.5 IU, DAILY
     Route: 065
     Dates: start: 201910
  2. LANTUS [Suspect]
     Active Substance: INSULIN GLARGINE
     Dosage: 13?14 UNITS, UNK
     Route: 065
  3. ADENOSINE;COENZYME A;INSULIN [Concomitant]
     Dosage: UNK
     Route: 065

REACTIONS (2)
  - Intentional product use issue [Unknown]
  - Diabetes mellitus inadequate control [Recovered/Resolved]
